FAERS Safety Report 19740309 (Version 1)
Quarter: 2021Q3

REPORT INFORMATION
  Report Type: Spontaneous
  Country: IT (occurrence: IT)
  Receive Date: 20210824
  Receipt Date: 20210824
  Transmission Date: 20211014
  Serious: Yes (Other)
  Sender: FDA-Public Use
  Company Number: IT-MYLANLABS-2021M1053880

PATIENT
  Age: 21 Year
  Sex: Male

DRUGS (1)
  1. LEVETIRACETAM MYLAN [Suspect]
     Active Substance: LEVETIRACETAM
     Indication: JUVENILE MYOCLONIC EPILEPSY
     Dosage: 1500 MILLIGRAM, QD (1500 MILLIGRAM/DAY)

REACTIONS (2)
  - Generalised tonic-clonic seizure [Unknown]
  - Therapeutic product effect incomplete [Unknown]
